FAERS Safety Report 5858154-6 (Version None)
Quarter: 2008Q3

REPORT INFORMATION
  Report Type: 
  Country: None (occurrence: None)
  Receive Date: 20080822
  Receipt Date: 20080815
  Transmission Date: 20090109
  Serious: Yes (Other)
  Sender: FDA-Public Use
  Company Number: 2008-03034

PATIENT
  Sex: Male

DRUGS (3)
  1. VELCADE [Suspect]
     Indication: MULTIPLE MYELOMA
  2. DEXAMETHASONE TAB [Concomitant]
  3. CLODRONATE DISODIUM (CLODRONATE DISODIUM) [Concomitant]

REACTIONS (2)
  - FATIGUE [None]
  - OSTEONECROSIS [None]
